FAERS Safety Report 4354523-4 (Version None)
Quarter: 2004Q2

REPORT INFORMATION
  Report Type: 
  Country: None (occurrence: None)
  Receive Date: 20040503
  Receipt Date: 20040422
  Transmission Date: 20050107
  Serious: Yes (Life-Threatening, Hospitalization)
  Sender: FDA-Public Use
  Company Number: 2004-04-1360

PATIENT
  Age: 81 Year
  Sex: Female
  Weight: 86.1834 kg

DRUGS (18)
  1. INTRON A [Suspect]
     Indication: BLADDER CANCER
     Dosage: SEE IMAGE
     Route: 043
     Dates: start: 20030420, end: 20030420
  2. INTRON A [Suspect]
     Indication: BLADDER CANCER
     Dosage: SEE IMAGE
     Route: 043
     Dates: start: 20030304, end: 20040420
  3. INTRON A [Suspect]
     Indication: BLADDER CANCER
     Dosage: SEE IMAGE
     Route: 043
     Dates: start: 20030304
  4. INTRON A [Suspect]
     Indication: BLADDER CANCER
     Dosage: SEE IMAGE
     Route: 043
     Dates: start: 20030623
  5. INTRON A [Suspect]
     Indication: BLADDER CANCER
     Dosage: SEE IMAGE
     Route: 043
     Dates: start: 20031001
  6. BCG VACCINE MISC STERILE [Suspect]
     Dosage: SEE IMAGE
     Route: 043
     Dates: start: 20030420, end: 20030420
  7. BCG VACCINE MISC STERILE [Suspect]
     Dosage: SEE IMAGE
     Route: 043
     Dates: start: 20030304, end: 20040420
  8. BCG VACCINE MISC STERILE [Suspect]
     Dosage: SEE IMAGE
     Route: 043
     Dates: start: 20030623
  9. BCG VACCINE MISC STERILE [Suspect]
     Dosage: SEE IMAGE
     Route: 043
     Dates: start: 20031001
  10. POTASSIUM CHLORIDE [Concomitant]
  11. LANOXIN [Concomitant]
  12. COUMADIN [Concomitant]
  13. FUROSEMIDE [Concomitant]
  14. ACCUPRIL [Concomitant]
  15. ZOCOR [Concomitant]
  16. ZAROXOLYN [Concomitant]
  17. METOPROLOL [Concomitant]
  18. MACROBID [Concomitant]

REACTIONS (7)
  - ANAPHYLACTIC SHOCK [None]
  - ATRIAL FIBRILLATION [None]
  - BLOOD BICARBONATE DECREASED [None]
  - BLOOD GLUCOSE INCREASED [None]
  - BLOOD POTASSIUM DECREASED [None]
  - BLOOD UREA INCREASED [None]
  - DRUG HYPERSENSITIVITY [None]
